FAERS Safety Report 8113231-4 (Version None)
Quarter: 2012Q1

REPORT INFORMATION
  Report Type: 
  Country: None (occurrence: None)
  Receive Date: 20120203
  Receipt Date: 20120131
  Transmission Date: 20120608
  Serious: Yes (Other)
  Sender: FDA-Public Use
  Company Number: US-PFIZER INC-2012028601

PATIENT
  Sex: Female

DRUGS (7)
  1. ZANAFLEX [Concomitant]
     Dosage: 4 MG
  2. VERAPAMIL EXTENDED-RELEASE [Concomitant]
     Dosage: 240 MG
  3. LORTAB [Concomitant]
     Dosage: 10/500 MG
  4. LYRICA [Suspect]
     Dosage: 200 MG, 2X/DAY
  5. HYDROCHLOROTHIAZIDE [Concomitant]
     Dosage: UNK
  6. LISINOPRIL [Concomitant]
     Dosage: 20 MG
  7. CELEXA [Concomitant]
     Dosage: 20 MG

REACTIONS (1)
  - POST LAMINECTOMY SYNDROME [None]
